FAERS Safety Report 8354723-2 (Version None)
Quarter: 2012Q2

REPORT INFORMATION
  Report Type: 
  Country: None (occurrence: None)
  Receive Date: 20120511
  Receipt Date: 20120503
  Transmission Date: 20120825
  Serious: Yes (Life-Threatening, Hospitalization, Other)
  Sender: FDA-Public Use
  Company Number: US-GLAXOSMITHKLINE-A0972364A

PATIENT
  Age: 61 Year
  Sex: Male
  Weight: 109.1 kg

DRUGS (5)
  1. HYDROCHLOROTHIAZIDE [Concomitant]
     Dosage: 12.5MG PER DAY
     Route: 048
  2. MALARONE [Suspect]
     Indication: MALARIA PROPHYLAXIS
     Route: 048
  3. LIPITOR [Concomitant]
     Indication: LIPIDS INCREASED
     Dates: end: 20120501
  4. OMEPRAZOLE [Concomitant]
     Indication: GASTROOESOPHAGEAL REFLUX DISEASE
     Dosage: 1TAB TWICE PER DAY
     Route: 048
  5. ASPIRIN [Concomitant]
     Dosage: 81MG PER DAY
     Route: 048

REACTIONS (6)
  - PANCREATIC PSEUDOCYST [None]
  - ABDOMINAL PAIN [None]
  - NAUSEA [None]
  - PANCREATITIS ACUTE [None]
  - LIPASE INCREASED [None]
  - VOMITING [None]
